FAERS Safety Report 5844236-1 (Version None)
Quarter: 2008Q3

REPORT INFORMATION
  Report Type: 
  Country: None (occurrence: None)
  Receive Date: 20080813
  Receipt Date: 20080802
  Transmission Date: 20090109
  Serious: Yes (Other)
  Sender: FDA-Public Use
  Company Number: US-PFIZER INC-2008065530

PATIENT
  Sex: Female
  Weight: 75 kg

DRUGS (9)
  1. CHANTIX [Suspect]
     Indication: SMOKING CESSATION THERAPY
  2. CRESTOR [Interacting]
  3. GABAPENTIN [Concomitant]
  4. SYNTHROID [Concomitant]
  5. WELLBUTRIN [Concomitant]
  6. XANAX [Concomitant]
  7. CARVEDILOL [Concomitant]
  8. SEROQUEL [Concomitant]
  9. AMBIEN [Concomitant]

REACTIONS (2)
  - ARTERIOSCLEROSIS [None]
  - CARDIAC REHABILITATION THERAPY [None]
